FAERS Safety Report 9168355 (Version 4)
Quarter: 2013Q3

REPORT INFORMATION
  Report Type: Spontaneous
  Country: US (occurrence: US)
  Receive Date: 20130318
  Receipt Date: 20130821
  Transmission Date: 20140515
  Serious: Yes (Death)
  Sender: FDA-Public Use
  Company Number: US-B.I. PHARMACEUTICALS,INC./RIDGEFIELD-2013-BI-06722BP

PATIENT
  Age: 87 Year
  Sex: Female

DRUGS (10)
  1. PRADAXA [Suspect]
     Indication: ATRIAL FIBRILLATION
     Dosage: 300 MG
     Dates: start: 20110623, end: 20111213
  2. DILTIAZEM [Concomitant]
     Dosage: 120 MG
  3. ATENOLOL [Concomitant]
     Dosage: 100 MG
  4. MECLIZINE [Concomitant]
  5. LORAZEPAM [Concomitant]
  6. NITROGLYCERIN [Concomitant]
  7. TUMS [Concomitant]
  8. ANTIVERT [Concomitant]
  9. LIPITOR [Concomitant]
     Dosage: 20 MG
  10. FISH OIL [Concomitant]

REACTIONS (3)
  - Cerebral haemorrhage [Fatal]
  - Epistaxis [Unknown]
  - Vaginal haemorrhage [Unknown]
